FAERS Safety Report 7746996-1 (Version None)
Quarter: 2011Q3

REPORT INFORMATION
  Report Type: 
  Country: None (occurrence: None)
  Receive Date: 20110913
  Receipt Date: 20110906
  Transmission Date: 20111222
  Serious: Yes (Other)
  Sender: FDA-Public Use
  Company Number: PHHY2011CA76487

PATIENT
  Sex: Male

DRUGS (1)
  1. SANDOSTATIN [Suspect]
     Indication: ENTEROCUTANEOUS FISTULA
     Route: 058
     Dates: start: 20110720, end: 20110723

REACTIONS (1)
  - WOUND EVISCERATION [None]
